FAERS Safety Report 15293193 (Version 1)
Quarter: 2018Q4

REPORT INFORMATION
  Report Type: Spontaneous
  Country: FR (occurrence: FR)
  Receive Date: 20180820
  Receipt Date: 20180820
  Transmission Date: 20190204
  Serious: Yes (Death)
  Sender: FDA-Public Use
  Company Number: FR-MERCK KGAA-2053928

PATIENT
  Age: 69 Year
  Sex: Male
  Weight: 79 kg

DRUGS (12)
  1. VITAMIN B6 [Suspect]
     Active Substance: PYRIDOXINE HYDROCHLORIDE
     Route: 048
     Dates: end: 20180110
  2. INDAPAMIDE. [Suspect]
     Active Substance: INDAPAMIDE
     Route: 048
     Dates: start: 20180110
  3. GLICLAZIDE [Suspect]
     Active Substance: GLICLAZIDE
     Route: 048
     Dates: end: 20180110
  4. SERESTA [Suspect]
     Active Substance: OXAZEPAM
     Route: 048
     Dates: end: 20180110
  5. LANTUS [Suspect]
     Active Substance: INSULIN GLARGINE
     Route: 058
     Dates: end: 20180110
  6. PROCORALAN [Suspect]
     Active Substance: IVABRADINE
     Route: 048
     Dates: end: 20180110
  7. PERINDOPRIL [Suspect]
     Active Substance: PERINDOPRIL
     Route: 048
     Dates: end: 20180110
  8. NOVOTHYROX [Suspect]
     Active Substance: LEVOTHYROXINE SODIUM
     Indication: THYROID DISORDER
     Route: 048
     Dates: end: 20180110
  9. JANUMET [Suspect]
     Active Substance: METFORMIN HYDROCHLORIDE\SITAGLIPTIN PHOSPHATE
     Route: 048
     Dates: end: 20180110
  10. NEBIVOLOL. [Suspect]
     Active Substance: NEBIVOLOL
     Route: 048
     Dates: end: 20180110
  11. DUOPLAVIN (NEFAZAN COMPUESTO) [Suspect]
     Active Substance: ASPIRIN\CLOPIDOGREL BISULFATE
     Route: 048
     Dates: end: 20180110
  12. ALLOPURINOL. [Suspect]
     Active Substance: ALLOPURINOL
     Route: 048
     Dates: end: 20180110

REACTIONS (1)
  - Lactic acidosis [Fatal]

NARRATIVE: CASE EVENT DATE: 20180110
